FAERS Safety Report 25643291 (Version 2)
Quarter: 2025Q3

REPORT INFORMATION
  Report Type: Spontaneous
  Country: TR (occurrence: TR)
  Receive Date: 20250805
  Receipt Date: 20250819
  Transmission Date: 20251021
  Serious: Yes (Life-Threatening, Hospitalization, Other)
  Sender: ALKEM
  Company Number: None

PATIENT
  Age: 15 Year
  Sex: Male
  Weight: 69 kg

DRUGS (5)
  1. MYCOPHENOLATE MOFETIL [Suspect]
     Active Substance: MYCOPHENOLATE MOFETIL
     Indication: Glomerulonephritis
     Dosage: 1200 MILLIGRAM/SQ. METER, QD
     Route: 065
  2. AMLODIPINE [Concomitant]
     Active Substance: AMLODIPINE BESYLATE
     Indication: Proteinuria
     Route: 065
  3. ENALAPRIL [Concomitant]
     Active Substance: ENALAPRIL
     Indication: Proteinuria
     Route: 065
  4. ENALAPRIL [Concomitant]
     Active Substance: ENALAPRIL
     Indication: Hypertension
  5. METHYLPREDNISOLONE [Concomitant]
     Active Substance: METHYLPREDNISOLONE
     Indication: Glomerulonephritis
     Dosage: 1000 MILLIGRAM, QD
     Route: 065

REACTIONS (2)
  - Thrombotic microangiopathy [Recovering/Resolving]
  - Haematuria [Recovering/Resolving]
